FAERS Safety Report 17984499 (Version 1)
Quarter: 2020Q3

REPORT INFORMATION
  Report Type: Spontaneous
  Country: DE (occurrence: DE)
  Receive Date: 20200706
  Receipt Date: 20200706
  Transmission Date: 20201103
  Serious: Yes (Hospitalization, Other)
  Sender: FDA-Public Use
  Company Number: NVSC2020DE185604

PATIENT
  Sex: Female

DRUGS (6)
  1. METHOTREXATE. [Suspect]
     Active Substance: METHOTREXATE
     Dosage: 20 MG, QW
     Route: 065
     Dates: start: 201904
  2. CERTOLIZUMAB PEGOL [Suspect]
     Active Substance: CERTOLIZUMAB PEGOL
     Dosage: 200 MG, Q2W (EV 2 WEEKS)
     Route: 058
     Dates: start: 201803, end: 201904
  3. METHOTREXATE. [Suspect]
     Active Substance: METHOTREXATE
     Indication: PRODUCT USED FOR UNKNOWN INDICATION
     Dosage: 17.5 MG, QW
     Route: 065
  4. METHOTREXATE. [Suspect]
     Active Substance: METHOTREXATE
     Dosage: 20 MG, QW
     Route: 065
     Dates: start: 201907
  5. CERTOLIZUMAB PEGOL [Suspect]
     Active Substance: CERTOLIZUMAB PEGOL
     Dosage: 200 MG, Q2W EV 2 WEEKS(QOW
     Route: 058
     Dates: start: 20190729, end: 20200113
  6. CERTOLIZUMAB PEGOL [Suspect]
     Active Substance: CERTOLIZUMAB PEGOL
     Indication: RHEUMATOID ARTHRITIS
     Dosage: 200 MG, Q2W (EV 2 WEEKS(QOW)
     Route: 058
     Dates: start: 201705, end: 20180213

REACTIONS (10)
  - Oral herpes [Not Recovered/Not Resolved]
  - Pulmonary embolism [Recovered/Resolved]
  - Escherichia urinary tract infection [Unknown]
  - Muscle rupture [Not Recovered/Not Resolved]
  - Arthralgia [Recovered/Resolved]
  - Body fat disorder [Recovered/Resolved]
  - Osteoarthritis [Unknown]
  - Chondrocalcinosis [Not Recovered/Not Resolved]
  - Faecaloma [Recovered/Resolved]
  - Ligament rupture [Not Recovered/Not Resolved]

NARRATIVE: CASE EVENT DATE: 20180206
